FAERS Safety Report 6442672-6 (Version None)
Quarter: 2009Q4

REPORT INFORMATION
  Report Type: 
  Country: None (occurrence: None)
  Receive Date: 20091112
  Receipt Date: 20091104
  Transmission Date: 20100525
  Serious: Yes (Other)
  Sender: FDA-Public Use
  Company Number: 2009SP034660

PATIENT
  Age: 16 Year
  Sex: Male
  Weight: 85 kg

DRUGS (6)
  1. VECURONIUM BROMIDE [Suspect]
     Indication: NEUROMUSCULAR BLOCKING THERAPY
  2. KETAMINE HCL [Suspect]
     Indication: INDUCTION OF ANAESTHESIA
  3. SUXAMETHONIUM (SUXAMETHONIUM) [Suspect]
     Indication: ANAESTHESIA
  4. HYDROCORTISONE [Suspect]
     Indication: ANAESTHESIA
  5. AMINOPHYLLINE HYDRATE (AMINOPHYLLING HYDRATE) [Suspect]
     Indication: DRUG USE FOR UNKNOWN INDICATION
     Dosage: INDRP
     Route: 041
  6. HYDROCORTISONE [Suspect]
     Indication: DRUG USE FOR UNKNOWN INDICATION
     Dosage: INDRP
     Route: 041

REACTIONS (1)
  - HYPERTHERMIA MALIGNANT [None]
